FAERS Safety Report 23166202 (Version 1)
Quarter: 2023Q4

REPORT INFORMATION
  Report Type: Spontaneous
  Country: US (occurrence: None)
  Receive Date: 20231109
  Receipt Date: 20231109
  Transmission Date: 20240110
  Serious: Yes (Hospitalization)
  Sender: FDA-Public Use
  Company Number: None

PATIENT
  Age: 51 Year
  Sex: Male
  Weight: 97 kg

DRUGS (3)
  1. CYTARABINE [Suspect]
     Active Substance: CYTARABINE
     Dates: end: 20231022
  2. SPRYCEL [Suspect]
     Active Substance: DASATINIB
     Dates: end: 20231030
  3. METHOTREXATE [Suspect]
     Active Substance: METHOTREXATE
     Dates: end: 20231020

REACTIONS (8)
  - Thrombocytopenia [None]
  - Anaemia [None]
  - Hypokalaemia [None]
  - Diarrhoea [None]
  - Enterocolitis [None]
  - Acute kidney injury [None]
  - Febrile neutropenia [None]
  - Therapy interrupted [None]

NARRATIVE: CASE EVENT DATE: 20231102
